FAERS Safety Report 6316565-9 (Version None)
Quarter: 2009Q3

REPORT INFORMATION
  Report Type: 
  Country: None (occurrence: None)
  Receive Date: 20090820
  Receipt Date: 20090812
  Transmission Date: 20100115
  Serious: Yes (Other)
  Sender: FDA-Public Use
  Company Number: PHHY2009AR32144

PATIENT
  Sex: Male

DRUGS (8)
  1. RASILEZ [Suspect]
     Indication: HYPERTENSION
     Dosage: 150 MG, QD
     Dates: start: 20090629
  2. HYDROCHLOROTHIAZIDE [Concomitant]
     Dosage: 12.5 MG, UNK
  3. HYDROCHLOROTHIAZIDE [Concomitant]
     Dosage: 6.25 MG, UNK
  4. TELMISARTAN [Concomitant]
     Dosage: 80 MG, UNK
  5. TELMISARTAN [Concomitant]
     Dosage: 40 MG, UNK
  6. CLONAZEPAM [Concomitant]
     Dosage: 0.5 MG, UNK
  7. AMLODIPINE [Concomitant]
     Dosage: 10 MG, UNK
  8. AMILORIDE HYDROCHLORIDE [Concomitant]
     Dosage: 5MG HALF TABLET DAY BY MEAN

REACTIONS (4)
  - ABDOMINAL PAIN [None]
  - BLOOD PRESSURE DECREASED [None]
  - DIARRHOEA [None]
  - MALAISE [None]
